FAERS Safety Report 5357266-3 (Version None)
Quarter: 2007Q2

REPORT INFORMATION
  Report Type: 
  Country: None (occurrence: None)
  Receive Date: 20070614
  Receipt Date: 20070604
  Transmission Date: 20071010
  Serious: Yes (Other)
  Sender: FDA-Public Use
  Company Number: HQWYE501906JUN07

PATIENT

DRUGS (1)
  1. SIROLIMUS [Suspect]
     Indication: IMMUNOSUPPRESSANT DRUG THERAPY
     Dosage: WAS UNSPECIFIED, BUT ADJUSTED TO REACH SERUM LEVELS OF 10 TO 15 NG/ML

REACTIONS (1)
  - FOCAL GLOMERULOSCLEROSIS [None]
